FAERS Safety Report 10899856 (Version 2)
Quarter: 2015Q2

REPORT INFORMATION
  Report Type: Spontaneous
  Country: US (occurrence: US)
  Receive Date: 20150310
  Receipt Date: 20150409
  Transmission Date: 20150821
  Serious: No
  Sender: FDA-Public Use
  Company Number: US-GLAXOSMITHKLINE-US2015021147

PATIENT
  Age: 79 Year
  Sex: Female

DRUGS (1)
  1. RYTHMOL SR [Suspect]
     Active Substance: PROPAFENONE HYDROCHLORIDE
     Indication: PRODUCT USED FOR UNKNOWN INDICATION
     Dosage: UNK, U
     Route: 065

REACTIONS (4)
  - Foreign body [Unknown]
  - Wrong technique in drug usage process [Unknown]
  - Dysphagia [Unknown]
  - Product quality issue [Unknown]

NARRATIVE: CASE EVENT DATE: 20150131
